FAERS Safety Report 9855325 (Version 4)
Quarter: 2014Q1

REPORT INFORMATION
  Report Type: Report from Study
  Country: US (occurrence: US)
  Receive Date: 20140130
  Receipt Date: 20140210
  Transmission Date: 20141002
  Serious: Yes (Hospitalization)
  Sender: FDA-Public Use
  Company Number: US-JNJFOC-20140114160

PATIENT
  Age: 6 Year
  Sex: Female
  Weight: 19 kg

DRUGS (10)
  1. REMICADE [Suspect]
     Indication: COLITIS ULCERATIVE
     Route: 042
     Dates: start: 201209
  2. PREDNISONE [Concomitant]
     Route: 065
  3. AZATHIOPRINE [Concomitant]
     Route: 065
  4. PROBIOTICS [Concomitant]
     Route: 065
  5. VITAMIN D [Concomitant]
     Route: 065
  6. IRON SUCROSE [Concomitant]
     Route: 065
  7. MULTIVITAMINS [Concomitant]
     Route: 065
  8. PENTASA [Concomitant]
     Route: 065
  9. PEPCID [Concomitant]
     Route: 065
  10. 5-ASA [Concomitant]
     Route: 048

REACTIONS (2)
  - Colitis ulcerative [Recovered/Resolved]
  - Gastroenteritis rotavirus [Recovered/Resolved]
